FAERS Safety Report 24234808 (Version 3)
Quarter: 2025Q3

REPORT INFORMATION
  Report Type: Spontaneous
  Country: EU (occurrence: EU)
  Receive Date: 20240821
  Receipt Date: 20250926
  Transmission Date: 20251020
  Serious: Yes (Other)
  Sender: MYLAN
  Company Number: EU-TILLOMEDPR-2024-EPL-004291

PATIENT
  Age: 36 Year
  Sex: Female

DRUGS (36)
  1. PREGABALIN [Suspect]
     Active Substance: PREGABALIN
     Indication: Product used for unknown indication
  2. PREGABALIN [Suspect]
     Active Substance: PREGABALIN
     Route: 065
  3. PREGABALIN [Suspect]
     Active Substance: PREGABALIN
     Route: 065
  4. PREGABALIN [Suspect]
     Active Substance: PREGABALIN
  5. ZOPICLONE [Suspect]
     Active Substance: ZOPICLONE
     Indication: Product used for unknown indication
  6. ZOPICLONE [Suspect]
     Active Substance: ZOPICLONE
     Route: 065
  7. ZOPICLONE [Suspect]
     Active Substance: ZOPICLONE
     Route: 065
  8. ZOPICLONE [Suspect]
     Active Substance: ZOPICLONE
  9. FENTANYL [Suspect]
     Active Substance: FENTANYL
     Indication: Product used for unknown indication
  10. FENTANYL [Suspect]
     Active Substance: FENTANYL
     Route: 065
  11. FENTANYL [Suspect]
     Active Substance: FENTANYL
     Route: 065
  12. FENTANYL [Suspect]
     Active Substance: FENTANYL
  13. BUPRENORPHINE [Suspect]
     Active Substance: BUPRENORPHINE
     Indication: Product used for unknown indication
  14. BUPRENORPHINE [Suspect]
     Active Substance: BUPRENORPHINE
     Route: 065
  15. BUPRENORPHINE [Suspect]
     Active Substance: BUPRENORPHINE
     Route: 065
  16. BUPRENORPHINE [Suspect]
     Active Substance: BUPRENORPHINE
  17. MORPHINE [Suspect]
     Active Substance: MORPHINE
     Indication: Product used for unknown indication
  18. MORPHINE [Suspect]
     Active Substance: MORPHINE
     Route: 065
  19. MORPHINE [Suspect]
     Active Substance: MORPHINE
     Route: 065
  20. MORPHINE [Suspect]
     Active Substance: MORPHINE
  21. CLONAZEPAM [Suspect]
     Active Substance: CLONAZEPAM
     Indication: Product used for unknown indication
  22. CLONAZEPAM [Suspect]
     Active Substance: CLONAZEPAM
     Route: 065
  23. CLONAZEPAM [Suspect]
     Active Substance: CLONAZEPAM
     Route: 065
  24. CLONAZEPAM [Suspect]
     Active Substance: CLONAZEPAM
  25. ALCOHOL [Suspect]
     Active Substance: ALCOHOL
     Indication: Product used for unknown indication
  26. ALCOHOL [Suspect]
     Active Substance: ALCOHOL
     Route: 065
  27. ALCOHOL [Suspect]
     Active Substance: ALCOHOL
     Route: 065
  28. ALCOHOL [Suspect]
     Active Substance: ALCOHOL
  29. HERBALS\TETRAHYDROCANNABINOL UNSPECIFIED [Suspect]
     Active Substance: HERBALS\TETRAHYDROCANNABINOL UNSPECIFIED
     Indication: Product used for unknown indication
  30. HERBALS\TETRAHYDROCANNABINOL UNSPECIFIED [Suspect]
     Active Substance: HERBALS\TETRAHYDROCANNABINOL UNSPECIFIED
     Route: 065
  31. HERBALS\TETRAHYDROCANNABINOL UNSPECIFIED [Suspect]
     Active Substance: HERBALS\TETRAHYDROCANNABINOL UNSPECIFIED
     Route: 065
  32. HERBALS\TETRAHYDROCANNABINOL UNSPECIFIED [Suspect]
     Active Substance: HERBALS\TETRAHYDROCANNABINOL UNSPECIFIED
  33. CODEINE [Suspect]
     Active Substance: CODEINE
     Indication: Product used for unknown indication
  34. CODEINE [Suspect]
     Active Substance: CODEINE
     Route: 065
  35. CODEINE [Suspect]
     Active Substance: CODEINE
     Route: 065
  36. CODEINE [Suspect]
     Active Substance: CODEINE

REACTIONS (4)
  - Substance abuse [Unknown]
  - Disorientation [Unknown]
  - Aggression [Unknown]
  - Withdrawal syndrome [Unknown]
